FAERS Safety Report 7640797-0 (Version None)
Quarter: 2011Q3

REPORT INFORMATION
  Report Type: 
  Country: None (occurrence: None)
  Receive Date: 20110728
  Receipt Date: 20110414
  Transmission Date: 20111222
  Serious: No
  Sender: FDA-Public Use
  Company Number: US-MUTUAL PHARMACEUTICAL COMPANY, INC.-CLCY20110030

PATIENT
  Sex: Male
  Weight: 79.45 kg

DRUGS (12)
  1. COLCRYS [Suspect]
     Route: 048
     Dates: start: 20110322, end: 20110411
  2. ASPIRIN [Concomitant]
     Indication: ANTICOAGULANT THERAPY
     Route: 048
  3. COLCRYS [Suspect]
     Route: 048
     Dates: start: 20110412, end: 20110412
  4. PLAVIX [Concomitant]
     Indication: ANTICOAGULANT THERAPY
     Route: 048
  5. CARVEDILOL [Concomitant]
     Indication: HYPERTENSION
     Route: 048
  6. COLCRYS [Suspect]
     Route: 048
     Dates: start: 20110413, end: 20110413
  7. ENALAPRIL MALEATE [Concomitant]
     Indication: HYPERTENSION
     Route: 048
  8. COLCRYS [Suspect]
     Indication: GOUT
     Route: 048
     Dates: start: 20110315, end: 20110315
  9. LEVOTHYROXINE SODIUM [Concomitant]
     Indication: HYPOTHYROIDISM
     Route: 048
  10. RANEXA [Concomitant]
     Indication: ANGINA PECTORIS
     Route: 048
  11. ISOSORBIDE MONONITRATE [Concomitant]
     Indication: ANGINA PECTORIS
     Route: 048
  12. FUROSEMIDE [Concomitant]
     Indication: HYPERTENSION
     Route: 048

REACTIONS (1)
  - DRUG INEFFECTIVE [None]
